FAERS Safety Report 4945642-X (Version None)
Quarter: 2006Q1

REPORT INFORMATION
  Report Type: 
  Country: None (occurrence: None)
  Receive Date: 20060117
  Receipt Date: 20050823
  Transmission Date: 20060701
  Serious: Yes (Hospitalization)
  Sender: FDA-Public Use
  Company Number: A03200502645

PATIENT
  Age: 74 Year
  Sex: Male
  Weight: 90.7 kg

DRUGS (10)
  1. PLAVIX [Suspect]
     Indication: CORONARY ARTERIAL STENT INSERTION
     Dosage: 75 MG QD ORAL
     Route: 048
     Dates: start: 20041129, end: 20050101
  2. PLAVIX [Suspect]
     Indication: CORONARY ARTERIAL STENT INSERTION
     Dosage: 75 MG QD ORAL
     Route: 048
     Dates: start: 20050206, end: 20050306
  3. ASPIRIN [Suspect]
     Indication: CORONARY ARTERIAL STENT INSERTION
     Dosage: 325 MG QD - ORAL
     Route: 048
     Dates: start: 20041129, end: 20050101
  4. ASPIRIN [Suspect]
     Indication: CORONARY ARTERIAL STENT INSERTION
     Dosage: 81 MG QD - ORAL
     Route: 048
     Dates: start: 20050206
  5. AMLODIPINE BESYLATE [Concomitant]
  6. MONTELUKAST SODIUM [Concomitant]
  7. PIOGLITAZONE HCL [Concomitant]
  8. DIGOXIN [Concomitant]
  9. NATEGLINIDE [Concomitant]
  10. PRAVASTATIN SODIUM [Concomitant]

REACTIONS (2)
  - RECTAL HAEMORRHAGE [None]
  - WEIGHT DECREASED [None]
